FAERS Safety Report 18570619 (Version 6)
Quarter: 2022Q1

REPORT INFORMATION
  Report Type: Report from Study
  Country: US (occurrence: US)
  Receive Date: 20201202
  Receipt Date: 20220124
  Transmission Date: 20220423
  Serious: Yes (Other)
  Sender: FDA-Public Use
  Company Number: US-TAKEDA-2020TUS052430

PATIENT
  Age: 21 Year
  Sex: Male
  Weight: 105 kg

DRUGS (33)
  1. HUMAN IMMUNOGLOBULIN G [Suspect]
     Active Substance: HUMAN IMMUNOGLOBULIN G
     Indication: Immunodeficiency common variable
     Dosage: 30 GRAM, Q4WEEKS
     Route: 042
     Dates: start: 20140524
  2. HUMAN IMMUNOGLOBULIN G [Suspect]
     Active Substance: HUMAN IMMUNOGLOBULIN G
     Indication: Immunodeficiency
  3. DIPHENHYDRAMINE [Concomitant]
     Active Substance: DIPHENHYDRAMINE
  4. HEPARIN [Concomitant]
     Active Substance: HEPARIN SODIUM
  5. LIDOCAINE AND PRILOCAINE [Concomitant]
     Active Substance: LIDOCAINE\PRILOCAINE
  6. SODIUM CHLORIDE [Concomitant]
     Active Substance: SODIUM CHLORIDE
  7. EPINEPHRINE [Concomitant]
     Active Substance: EPINEPHRINE
  8. GABAPENTIN [Concomitant]
     Active Substance: GABAPENTIN
  9. REGLAN [Concomitant]
     Active Substance: METOCLOPRAMIDE HYDROCHLORIDE
  10. METOCLOPRAMIDE [Concomitant]
     Active Substance: METOCLOPRAMIDE
  11. CICLOPIROX [Concomitant]
     Active Substance: CICLOPIROX
  12. HYDROCORTISONE [Concomitant]
     Active Substance: HYDROCORTISONE
  13. DICLOFENAC [Concomitant]
     Active Substance: DICLOFENAC
  14. ZOFRAN [Concomitant]
     Active Substance: ONDANSETRON HYDROCHLORIDE
  15. CLOBETASOL [Concomitant]
     Active Substance: CLOBETASOL
  16. KETOCONAZOLE [Concomitant]
     Active Substance: KETOCONAZOLE
  17. VITAMIN D2 [Concomitant]
     Active Substance: ERGOCALCIFEROL
  18. ACETAMINOPHEN [Concomitant]
     Active Substance: ACETAMINOPHEN
  19. NEXIUM I.V. [Concomitant]
     Active Substance: ESOMEPRAZOLE SODIUM
  20. LEVBID [Concomitant]
     Active Substance: HYOSCYAMINE SULFATE
  21. COMPAZINE [Concomitant]
     Active Substance: PROCHLORPERAZINE MALEATE
  22. AMITRIPTYLINE [Concomitant]
     Active Substance: AMITRIPTYLINE
  23. HYOSCYAMINE SULFATE [Concomitant]
     Active Substance: HYOSCYAMINE SULFATE
  24. DEXILANT [Concomitant]
     Active Substance: DEXLANSOPRAZOLE
  25. CLOBETASOL PROPIONATE [Concomitant]
     Active Substance: CLOBETASOL PROPIONATE
  26. AUGMENTIN [Concomitant]
     Active Substance: AMOXICILLIN\CLAVULANATE POTASSIUM
  27. TRAZODONE HCL [Concomitant]
     Active Substance: TRAZODONE HYDROCHLORIDE
  28. MAPAP [Concomitant]
     Active Substance: ACETAMINOPHEN
  29. PRIVIGEN [Concomitant]
     Active Substance: HUMAN IMMUNOGLOBULIN G
  30. SUMATRIPTAN SUCCINATE [Concomitant]
     Active Substance: SUMATRIPTAN SUCCINATE
  31. VITAMIN D [Concomitant]
     Active Substance: VITAMIN D NOS
  32. CETIRIZINE HCL [Concomitant]
     Active Substance: CETIRIZINE HYDROCHLORIDE
  33. GRANISETRON HYDROCHLORIDE [Concomitant]
     Active Substance: GRANISETRON HYDROCHLORIDE

REACTIONS (11)
  - Pneumonia [Unknown]
  - Pneumonia aspiration [Recovering/Resolving]
  - Illness [Unknown]
  - Large intestine infection [Unknown]
  - Migraine [Unknown]
  - Sinusitis [Unknown]
  - Oesophagitis [Unknown]
  - Weight decreased [Unknown]
  - Abdominal pain upper [Unknown]
  - Abdominal discomfort [Unknown]
  - Chest pain [Unknown]

NARRATIVE: CASE EVENT DATE: 20210201
